FAERS Safety Report 22035812 (Version 1)
Quarter: 2023Q1

REPORT INFORMATION
  Report Type: Spontaneous
  Country: None (occurrence: US)
  Receive Date: 20230224
  Receipt Date: 20230224
  Transmission Date: 20230417
  Serious: No
  Sender: FDA-Public Use
  Company Number: US-GREER Laboratories, Inc.-2138433

PATIENT
  Age: 6 Year
  Sex: Male
  Weight: 25.909 kg

DRUGS (7)
  1. PECAN FOOD [Suspect]
     Active Substance: PECAN
     Indication: Food allergy
  2. ENGLISH WALNUT FOOD [Suspect]
     Active Substance: ENGLISH WALNUT
  3. ALMOND FOOD [Suspect]
     Active Substance: ALMOND
  4. BRAZIL NUT [Suspect]
     Active Substance: BRAZIL NUT
  5. CASHEW NUT [Suspect]
     Active Substance: CASHEW
  6. FILBERT HAZELNUT FOOD [Suspect]
     Active Substance: AMERICAN HAZELNUT
  7. PISTACHIO [Suspect]
     Active Substance: PISTACHIO

REACTIONS (2)
  - Drug ineffective [Recovered/Resolved]
  - No adverse event [Recovered/Resolved]
